FAERS Safety Report 7061731-0 (Version None)
Quarter: 2010Q4

REPORT INFORMATION
  Report Type: 
  Country: None (occurrence: None)
  Receive Date: 20101026
  Receipt Date: 20101015
  Transmission Date: 20110411
  Serious: Yes (Death)
  Sender: FDA-Public Use
  Company Number: JP-ROCHE-731047

PATIENT
  Sex: Male
  Weight: 48 kg

DRUGS (8)
  1. XELODA [Suspect]
     Indication: COLON CANCER METASTATIC
     Route: 041
     Dates: start: 20100816, end: 20100906
  2. AVASTIN [Suspect]
     Indication: COLON CANCER METASTATIC
     Route: 041
     Dates: start: 20090323, end: 20100906
  3. OXALIPLATIN [Concomitant]
     Route: 041
     Dates: start: 20090312, end: 20091207
  4. OXALIPLATIN [Concomitant]
     Route: 041
     Dates: start: 20100816, end: 20100906
  5. FLUOROURACIL [Concomitant]
     Route: 040
     Dates: start: 20090312, end: 20091201
  6. FLUOROURACIL [Concomitant]
     Route: 040
     Dates: start: 20091201, end: 20100621
  7. CAMPTOSAR [Concomitant]
     Route: 041
     Dates: start: 20091201, end: 20100621
  8. LASIX [Concomitant]
     Route: 048
     Dates: start: 20100928, end: 20100929

REACTIONS (1)
  - GASTROINTESTINAL PERFORATION [None]
